FAERS Safety Report 21662242 (Version 6)
Quarter: 2024Q2

REPORT INFORMATION
  Report Type: Other
  Country: CO (occurrence: CO)
  Receive Date: 20221130
  Receipt Date: 20240417
  Transmission Date: 20240716
  Serious: Yes (Hospitalization, Other)
  Sender: FDA-Public Use
  Company Number: CO-002147023-NVSC2022CO263502

PATIENT
  Age: 11 Year
  Sex: Male
  Weight: 39 kg

DRUGS (3)
  1. XOLAIR [Suspect]
     Active Substance: OMALIZUMAB
     Indication: Asthma
     Dosage: 525 MG,
     Route: 058
  2. XOLAIR [Suspect]
     Active Substance: OMALIZUMAB
     Route: 058
  3. XOLAIR [Suspect]
     Active Substance: OMALIZUMAB
     Dosage: 525 MG, Q2W (3 OF 150 MG PLUS 1 OF 75 MG, ONCE EVERY 15 DAYS)
     Route: 058
     Dates: start: 20221116

REACTIONS (8)
  - Illness [Not Recovered/Not Resolved]
  - Chest pain [Unknown]
  - Oxygen saturation decreased [Unknown]
  - Urticaria [Unknown]
  - Cough [Unknown]
  - Asthmatic crisis [Unknown]
  - Dyspnoea [Unknown]
  - Incorrect dose administered [Unknown]
